FAERS Safety Report 6965927-5 (Version None)
Quarter: 2010Q3

REPORT INFORMATION
  Report Type: 
  Country: None (occurrence: None)
  Receive Date: 20100903
  Receipt Date: 20100903
  Transmission Date: 20110219
  Serious: Yes (Other)
  Sender: FDA-Public Use
  Company Number: FR-MPIJNJ-2010-02546

PATIENT

DRUGS (4)
  1. VELCADE [Suspect]
     Indication: MULTIPLE MYELOMA
     Dosage: 1.3 MG/M2, UNK
     Route: 042
     Dates: start: 20100112, end: 20100222
  2. VELCADE [Suspect]
     Dosage: 1 MG/M2, UNK
     Route: 042
     Dates: start: 20100319
  3. DEXAMETHASONE [Concomitant]
     Dosage: 40 MG, UNK
     Route: 042
  4. VALSARTAN  AND HYDROCHLOROTHIAZIDE [Concomitant]
     Dosage: 80 MG, UNK
     Route: 048

REACTIONS (2)
  - MUSCLE SPASMS [None]
  - PSYCHOMOTOR SKILLS IMPAIRED [None]
